FAERS Safety Report 20492871 (Version 8)
Quarter: 2022Q3

REPORT INFORMATION
  Report Type: Report from Study
  Country: US (occurrence: US)
  Receive Date: 20220219
  Receipt Date: 20220816
  Transmission Date: 20221026
  Serious: Yes (Other)
  Sender: FDA-Public Use
  Company Number: US-NOVARTISPH-NVSC2022US035679

PATIENT
  Age: 73 Year
  Sex: Female

DRUGS (3)
  1. ENTRESTO [Suspect]
     Active Substance: SACUBITRIL\VALSARTAN
     Indication: Product used for unknown indication
     Dosage: 1 DOSAGE FORM, BID (24/26 MG)
     Route: 048
     Dates: start: 20220102
  2. ENTRESTO [Suspect]
     Active Substance: SACUBITRIL\VALSARTAN
     Dosage: 1 DOSAGE FORM, BID (24/26 MG)
     Route: 048
  3. ENTRESTO [Suspect]
     Active Substance: SACUBITRIL\VALSARTAN
     Dosage: 1 DOSAGE FORM, (49/51 MG)
     Route: 065

REACTIONS (20)
  - Neuropathy peripheral [Unknown]
  - Ejection fraction decreased [Unknown]
  - Loss of consciousness [Unknown]
  - Ventricular extrasystoles [Recovering/Resolving]
  - Dyspnoea [Recovering/Resolving]
  - Pain in extremity [Recovering/Resolving]
  - Inflammation [Unknown]
  - Dysstasia [Unknown]
  - Peripheral swelling [Unknown]
  - Head injury [Unknown]
  - Concussion [Unknown]
  - Haematoma [Unknown]
  - Bone pain [Unknown]
  - Feeling hot [Unknown]
  - Foot fracture [Unknown]
  - Contusion [Unknown]
  - Fatigue [Unknown]
  - Fall [Unknown]
  - Cough [Unknown]
  - Hypotension [Unknown]

NARRATIVE: CASE EVENT DATE: 20220527
